FAERS Safety Report 23059289 (Version 5)
Quarter: 2024Q3

REPORT INFORMATION
  Report Type: Report from Study
  Country: JP (occurrence: JP)
  Receive Date: 20231012
  Receipt Date: 20240919
  Transmission Date: 20241017
  Serious: Yes (Death, Life-Threatening, Hospitalization, Disabling, Other)
  Sender: TAKEDA
  Company Number: JP-JNJFOC-20231018068

PATIENT
  Age: 78 Year
  Sex: Female
  Weight: 42.1 kg

DRUGS (20)
  1. BORTEZOMIB [Suspect]
     Active Substance: BORTEZOMIB
     Indication: Plasma cell myeloma
     Dosage: UNK
     Route: 065
  2. DARATUMUMAB [Suspect]
     Active Substance: DARATUMUMAB
     Indication: Plasma cell myeloma
     Dosage: 1800 MILLIGRAM, QD
     Route: 058
     Dates: start: 20230418, end: 20230418
  3. DARATUMUMAB [Suspect]
     Active Substance: DARATUMUMAB
     Dosage: 1800 MILLIGRAM, QD
     Route: 058
     Dates: start: 20230425, end: 20230425
  4. DARATUMUMAB [Suspect]
     Active Substance: DARATUMUMAB
     Dosage: 1800 MILLIGRAM, QD
     Route: 058
     Dates: start: 20230508, end: 20230508
  5. DARATUMUMAB [Suspect]
     Active Substance: DARATUMUMAB
     Dosage: 1800 MILLIGRAM, QD
     Route: 058
     Dates: start: 20230515, end: 20230515
  6. DARATUMUMAB [Suspect]
     Active Substance: DARATUMUMAB
     Dosage: 1800 MILLIGRAM, QD
     Route: 058
     Dates: start: 20230522, end: 20230522
  7. DARATUMUMAB [Suspect]
     Active Substance: DARATUMUMAB
     Dosage: 1800 MILLIGRAM, QD
     Route: 058
     Dates: start: 20230703, end: 20230703
  8. DARATUMUMAB [Suspect]
     Active Substance: DARATUMUMAB
     Dosage: 1800 MILLIGRAM, QD
     Route: 058
     Dates: start: 20230724, end: 20230724
  9. DARATUMUMAB [Suspect]
     Active Substance: DARATUMUMAB
     Dosage: 1800 MILLIGRAM, QD
     Route: 058
     Dates: start: 20230814, end: 20230814
  10. DARATUMUMAB [Suspect]
     Active Substance: DARATUMUMAB
     Dosage: 1800 MILLIGRAM, QD
     Route: 058
     Dates: start: 20230814, end: 20230814
  11. DARATUMUMAB [Suspect]
     Active Substance: DARATUMUMAB
     Dosage: 1800 MILLIGRAM, QD
     Route: 058
     Dates: start: 20230904, end: 20230904
  12. DARATUMUMAB [Suspect]
     Active Substance: DARATUMUMAB
     Dosage: 1800 MILLIGRAM, QD
     Route: 058
     Dates: start: 20231016, end: 20231016
  13. DARATUMUMAB [Suspect]
     Active Substance: DARATUMUMAB
     Dosage: 1800 MILLIGRAM, QD
     Route: 058
     Dates: start: 20231106, end: 20231106
  14. MELPHALAN [Concomitant]
     Active Substance: MELPHALAN
     Indication: Plasma cell myeloma
     Dosage: UNK
     Route: 065
  15. PREDNISOLONE [Concomitant]
     Active Substance: PREDNISOLONE
     Indication: Plasma cell myeloma
     Dosage: UNK
     Route: 065
  16. SOLU-MEDROL [Concomitant]
     Active Substance: METHYLPREDNISOLONE SODIUM SUCCINATE
     Indication: Interstitial lung disease
     Dosage: 125 MILLIGRAM, QD
     Route: 065
     Dates: start: 20240213, end: 20240215
  17. SOLU-MEDROL [Concomitant]
     Active Substance: METHYLPREDNISOLONE SODIUM SUCCINATE
     Dosage: 80 MILLIGRAM, QD
     Route: 065
     Dates: start: 20240216, end: 20240227
  18. PREDONINE [Concomitant]
     Active Substance: PREDNISOLONE
     Indication: Interstitial lung disease
     Dosage: 60 MILLIGRAM, QD
     Dates: start: 20240228, end: 20240304
  19. PIPERACILLIN AND TAZOBACTAM [Concomitant]
     Active Substance: PIPERACILLIN SODIUM\TAZOBACTAM SODIUM
     Indication: Interstitial lung disease
     Dosage: 9 GRAM, QD
     Route: 065
     Dates: start: 20240213, end: 20240220
  20. MEROPENEM [Concomitant]
     Active Substance: MEROPENEM
     Indication: Interstitial lung disease
     Dosage: 2 GRAM, QD
     Route: 065
     Dates: start: 20240221, end: 20240304

REACTIONS (3)
  - Aplasia pure red cell [Fatal]
  - Interstitial lung disease [Fatal]
  - Gastric cancer [Recovering/Resolving]

NARRATIVE: CASE EVENT DATE: 20230501
